FAERS Safety Report 5307522-X (Version None)
Quarter: 2007Q2

REPORT INFORMATION
  Report Type: 
  Country: None (occurrence: None)
  Receive Date: 20070425
  Receipt Date: 20051219
  Transmission Date: 20071010
  Serious: Yes (Death, Hospitalization)
  Sender: FDA-Public Use
  Company Number: PHHO2005JP14902

PATIENT
  Age: 83 Year
  Sex: Female

DRUGS (17)
  1. ATARAX [Concomitant]
     Dosage: UNK, UNK
     Route: 042
     Dates: start: 20050408
  2. ELCITONIN [Concomitant]
     Indication: HYPERCALCAEMIA
     Dosage: 80 IU, UNK
     Route: 042
     Dates: start: 20050409, end: 20050411
  3. SOLITA T [Concomitant]
     Indication: HYPERCALCAEMIA
     Route: 042
     Dates: start: 20050408, end: 20050411
  4. CEFMETAZON [Concomitant]
     Indication: PROPHYLAXIS
     Dosage: 2 G, UNK
     Route: 042
     Dates: start: 20050409, end: 20050411
  5. BAKTAR [Concomitant]
     Indication: PROPHYLAXIS
     Dosage: 400 MG, UNK
     Route: 048
     Dates: start: 20050412, end: 20050418
  6. OZEX [Concomitant]
     Indication: PROPHYLAXIS
     Dosage: 300 MG, UNK
     Route: 048
     Dates: start: 20050412, end: 20050418
  7. LASIX [Concomitant]
     Dosage: 20 MG, UNK
     Route: 048
     Dates: start: 20050412, end: 20050418
  8. LAXOBERON [Concomitant]
     Dosage: 10 UNK, UNK
     Route: 048
     Dates: start: 20050418, end: 20050501
  9. ASPIRIN [Concomitant]
     Dosage: 100 MG, UNK
     Route: 048
     Dates: start: 20050210, end: 20050501
  10. NORVASC [Concomitant]
     Dosage: 5 MG, UNK
     Route: 048
     Dates: start: 20050210, end: 20050501
  11. DECADRON [Concomitant]
     Indication: ADULT T-CELL LYMPHOMA/LEUKAEMIA
     Dosage: UNK, UNK
     Route: 048
     Dates: start: 20050408, end: 20050423
  12. DECADRON [Concomitant]
     Dates: end: 20050423
  13. ZOMETA [Suspect]
     Indication: HYPERCALCAEMIA OF MALIGNANCY
     Dosage: 4 MG, UNK
     Route: 042
     Dates: start: 20050408
  14. GASTER D [Concomitant]
     Indication: PROPHYLAXIS
     Dosage: 40 MG, UNK
     Route: 048
     Dates: start: 20050408, end: 20050412
  15. VEPESID [Concomitant]
     Indication: ADULT T-CELL LYMPHOMA/LEUKAEMIA
     Dosage: 25 MG, UNK
     Route: 048
     Dates: start: 20050408, end: 20050412
  16. ITRACONAZOLE [Concomitant]
     Indication: PROPHYLAXIS
     Dosage: 100 MG, UNK
     Route: 048
     Dates: start: 20050409, end: 20050414
  17. HALOPERIDOL [Concomitant]
     Dosage: 5 MG, UNK
     Route: 042
     Dates: start: 20050408

REACTIONS (9)
  - BACK PAIN [None]
  - C-REACTIVE PROTEIN INCREASED [None]
  - CHEYNE-STOKES RESPIRATION [None]
  - DYSPNOEA [None]
  - LEUKOPENIA [None]
  - MALIGNANT NEOPLASM PROGRESSION [None]
  - ORAL INTAKE REDUCED [None]
  - PNEUMONIA BACTERIAL [None]
  - THROMBOCYTOPENIA [None]
